FAERS Safety Report 7078895-5 (Version None)
Quarter: 2010Q4

REPORT INFORMATION
  Report Type: 
  Country: None (occurrence: None)
  Receive Date: 20101102
  Receipt Date: 20101101
  Transmission Date: 20110411
  Serious: Yes (Other)
  Sender: FDA-Public Use
  Company Number: US-PFIZER INC-2008150661

PATIENT
  Age: 7 Year
  Sex: Male

DRUGS (3)
  1. XANAX [Suspect]
     Dosage: UNK
     Dates: start: 20081101
  2. LUNESTA [Suspect]
     Route: 048
  3. RITALIN [Suspect]

REACTIONS (3)
  - ACCIDENTAL DRUG INTAKE BY CHILD [None]
  - DRUG SCREEN POSITIVE [None]
  - LETHARGY [None]
